FAERS Safety Report 6136802-3 (Version None)
Quarter: 2009Q1

REPORT INFORMATION
  Report Type: 
  Country: None (occurrence: None)
  Receive Date: 20090326
  Receipt Date: 20090326
  Transmission Date: 20090719
  Serious: Yes (Other)
  Sender: FDA-Public Use
  Company Number: None

PATIENT
  Age: 51 Year
  Sex: Female
  Weight: 127 kg

DRUGS (2)
  1. FENTANYL-100 [Suspect]
     Indication: PAIN
     Dosage: 100 MCG Q 3 DAYS TOPICAL
     Route: 061
     Dates: start: 20090201
  2. FENTANYL-75 [Suspect]
     Dosage: 75 MCG Q 3 DAYS TOPICAL 07/200 - 2/2009
     Route: 061
     Dates: end: 20090201

REACTIONS (2)
  - APPLICATION SITE PRURITUS [None]
  - APPLICATION SITE RASH [None]
